FAERS Safety Report 23151570 (Version 1)
Quarter: 2023Q4

REPORT INFORMATION
  Report Type: Spontaneous
  Country: US (occurrence: US)
  Receive Date: 20231107
  Receipt Date: 20231107
  Transmission Date: 20240109
  Serious: No
  Sender: FDA-Public Use
  Company Number: US-Accord-383855

PATIENT
  Sex: Male
  Weight: 49.9 kg

DRUGS (3)
  1. LEVOTHYROXINE [Suspect]
     Active Substance: LEVOTHYROXINE
     Indication: Hypothyroidism
     Dosage: 3 TIMES WEEKLY, ROUND, PINK, SCORE, P10
     Route: 048
  2. ZYRTEC [Concomitant]
     Active Substance: CETIRIZINE HYDROCHLORIDE
  3. VITAMINS [Concomitant]
     Active Substance: VITAMINS

REACTIONS (6)
  - Joint swelling [Unknown]
  - Temperature intolerance [Unknown]
  - Peripheral swelling [Unknown]
  - Weight decreased [Unknown]
  - Blood thyroid stimulating hormone abnormal [Unknown]
  - Treatment noncompliance [Unknown]
